FAERS Safety Report 5162697-0 (Version None)
Quarter: 2006Q4

REPORT INFORMATION
  Report Type: 
  Country: None (occurrence: None)
  Receive Date: 20061201
  Receipt Date: 20060602
  Transmission Date: 20070319
  Serious: Yes (Other)
  Sender: FDA-Public Use
  Company Number: US-GLAXOSMITHKLINE-A0607740A

PATIENT
  Age: 48 Year
  Sex: Female

DRUGS (2)
  1. AUGMENTIN '125' [Suspect]
     Indication: ACUTE SINUSITIS
     Route: 048
  2. SUDAFED 12 HOUR [Concomitant]
     Route: 048

REACTIONS (1)
  - JAUNDICE CHOLESTATIC [None]
